FAERS Safety Report 24731123 (Version 1)
Quarter: 2024Q4

REPORT INFORMATION
  Report Type: Spontaneous
  Country: FR (occurrence: FR)
  Receive Date: 20241213
  Receipt Date: 20241213
  Transmission Date: 20250115
  Serious: Yes (Hospitalization)
  Sender: RANBAXY
  Company Number: FR-SUN PHARMACEUTICAL INDUSTRIES LTD-2024RR-484069

PATIENT
  Age: 85 Year
  Sex: Male

DRUGS (3)
  1. OLANZAPINE [Suspect]
     Active Substance: OLANZAPINE
     Indication: Wrong patient
     Dosage: 10 MILLIGRAM, IN TOTAL
     Route: 048
     Dates: start: 20241017, end: 20241017
  2. MIANSERIN HYDROCHLORIDE [Suspect]
     Active Substance: MIANSERIN HYDROCHLORIDE
     Indication: Wrong patient
     Dosage: 30 MILLIGRAM, IN TOTAL
     Route: 048
     Dates: start: 20241017, end: 20241017
  3. VALPROATE SODIUM [Suspect]
     Active Substance: VALPROATE SODIUM
     Indication: Wrong patient
     Dosage: 500 MILLIGRAM, IN TOTAL
     Route: 048
     Dates: start: 20241017, end: 20241017

REACTIONS (3)
  - Fall [Recovered/Resolved]
  - Wrong patient [Recovered/Resolved]
  - Somnolence [Recovered/Resolved]

NARRATIVE: CASE EVENT DATE: 20241017
